FAERS Safety Report 9247866 (Version 2)
Quarter: 2014Q1

REPORT INFORMATION
  Report Type: Spontaneous
  Country: US (occurrence: None)
  Receive Date: 20130305
  Receipt Date: 20140306
  Transmission Date: 20141002
  Serious: Yes (Other)
  Sender: FDA-Public Use
  Company Number: 163-21880-12101410

PATIENT
  Age: 66 Year
  Sex: Male

DRUGS (21)
  1. REVLIMID [Suspect]
     Indication: PLASMA CELL MYELOMA
     Dosage: 25MG, 1 IN 1 D, PO
     Route: 048
     Dates: start: 201108
  2. PLAVIX (CLOPIDOGREL SULFATE) (TABLETS) [Concomitant]
  3. MUSE (ALPROSTADIL) [Concomitant]
  4. ALPRAZOLAM (ALPRAZOLAM) [Concomitant]
  5. ADDERALL XR (OBETROL) (CAPSULES) [Concomitant]
  6. METHYLPHENIDATE (METHYLPHENIDATE) (TABLETS) [Concomitant]
  7. ANDROGEL (TESTOSTERONE) [Concomitant]
  8. AMOXICILLIN (AMOXICILLIN) (CAPSULES) [Concomitant]
  9. HYDROCODONE W/ ACETAMINOPHEN (VICODIN) [Concomitant]
  10. OXYCODONE W/ ACETAMINOPHEN (OXYCOCET) [Concomitant]
  11. CHLORHEXIDINE (CHLORHEXIDINE) [Concomitant]
  12. CIPROFLOXACIN (CIPROFLOXACIN) [Concomitant]
  13. GABAPENTIN (GABAPENTIN) (CAPSULES) [Concomitant]
  14. ATOVAQUONE PROQUANIL (MALARONE) [Concomitant]
  15. AZITHROMYCIN (AZITHROMYCIN) [Concomitant]
  16. CIALIS (TADALAFIL) (TABLETS) [Concomitant]
  17. PRIMIDONE [Concomitant]
  18. ONDANSETRON [Concomitant]
  19. PREDNISOLONE ACETATE [Concomitant]
  20. LEVOFLOXACINE (LEVOFLOXACIN HEMIHYDRATE) [Concomitant]
  21. KETOROLAC [Concomitant]

REACTIONS (2)
  - Neuropathy peripheral [None]
  - Fatigue [None]
